FAERS Safety Report 8776084 (Version 1)
Quarter: 2012Q4

REPORT INFORMATION
  Report Type: 
  Country: US (occurrence: US)
  Receive Date: 20120910
  Receipt Date: 20120910
  Transmission Date: 20130627
  Serious: Yes (Life-Threatening, Hospitalization)
  Sender: FDA-Public Use
  Company Number: US-BAYER-2012-085164

PATIENT
  Age: 80 Year
  Sex: Male
  Weight: 66 kg

DRUGS (9)
  1. XARELTO [Suspect]
     Indication: CEREBROVASCULAR ACCIDENT PROPHYLAXIS
     Dosage: 20 mg, QD
     Route: 048
     Dates: start: 20120301, end: 20120605
  2. XARELTO [Interacting]
     Indication: CARDIAC DISORDER
  3. XARELTO [Interacting]
     Indication: ATRIAL FIBRILLATION
  4. ACETYLSALICYLIC ACID (} 100 MG) [Interacting]
  5. METFORMIN [Concomitant]
  6. LISINOPRIL [Concomitant]
  7. CRESTOR [Concomitant]
  8. DIOVAN [Concomitant]
  9. METOPROLOL [Concomitant]

REACTIONS (2)
  - Subdural haematoma [Recovering/Resolving]
  - Haemoglobin decreased [None]
